FAERS Safety Report 16155549 (Version 3)
Quarter: 2019Q2

REPORT INFORMATION
  Report Type: Spontaneous
  Country: KR (occurrence: KR)
  Receive Date: 20190404
  Receipt Date: 20190611
  Transmission Date: 20190711
  Serious: Yes (Other)
  Sender: FDA-Public Use
  Company Number: KR-ROCHE-2295332

PATIENT
  Sex: Female

DRUGS (2)
  1. SOLONDO [Concomitant]
     Active Substance: PREDNISOLONE
     Indication: PRODUCT USED FOR UNKNOWN INDICATION
     Route: 065
  2. XOLAIR [Suspect]
     Active Substance: OMALIZUMAB
     Indication: CHRONIC SPONTANEOUS URTICARIA
     Dosage: ONCE EVERY 3 TO 4 WEEKS
     Route: 058
     Dates: start: 201807, end: 201812

REACTIONS (11)
  - Enteritis [Recovered/Resolved]
  - Sinusitis [Recovered/Resolved]
  - Pruritus [Unknown]
  - Menstruation irregular [Unknown]
  - Uterine polyp [Recovering/Resolving]
  - Diarrhoea [Recovered/Resolved]
  - Viral upper respiratory tract infection [Recovered/Resolved]
  - Urticaria [Recovered/Resolved]
  - Alopecia [Not Recovered/Not Resolved]
  - Weight decreased [Unknown]
  - Nasopharyngitis [Recovered/Resolved]

NARRATIVE: CASE EVENT DATE: 20190108
